FAERS Safety Report 6533964-0 (Version None)
Quarter: 2010Q1

REPORT INFORMATION
  Report Type: 
  Country: None (occurrence: None)
  Receive Date: 20100112
  Receipt Date: 20100104
  Transmission Date: 20100710
  Serious: Yes (Hospitalization, Disabling, Other)
  Sender: FDA-Public Use
  Company Number: US-CELGENEUS-163-20785-09102366

PATIENT
  Sex: Male

DRUGS (2)
  1. THALOMID [Suspect]
     Route: 048
     Dates: start: 20090201, end: 20090623
  2. THALOMID [Suspect]
     Indication: MULTIPLE MYELOMA
     Route: 048
     Dates: start: 20050901, end: 20090101

REACTIONS (3)
  - MUSCLE SPASMS [None]
  - NEUROPATHY PERIPHERAL [None]
  - SPINAL COMPRESSION FRACTURE [None]
